FAERS Safety Report 8031625-2 (Version None)
Quarter: 2012Q1

REPORT INFORMATION
  Report Type: 
  Country: None (occurrence: None)
  Receive Date: 20120109
  Receipt Date: 20120105
  Transmission Date: 20120608
  Serious: Yes (Life-Threatening, Other)
  Sender: FDA-Public Use
  Company Number: PHHY2012GB000937

PATIENT
  Age: 59 Year
  Sex: Female
  Weight: 107.78 kg

DRUGS (21)
  1. ESTRADIOL VALERATE [Concomitant]
     Dosage: UNK
     Dates: start: 20110706, end: 20110928
  2. EPIPEN [Concomitant]
     Dosage: UNK
     Dates: start: 20111011, end: 20111012
  3. FLUCONAZOLE [Concomitant]
     Dosage: UNK
     Dates: start: 20110816
  4. ERYTHROMYCIN [Concomitant]
     Dosage: UNK
     Dates: start: 20111014
  5. FUCIDINE CAP [Concomitant]
     Dosage: UNK
     Dates: start: 20111014
  6. NICOTINE [Concomitant]
     Dosage: UNK
     Dates: start: 20110928, end: 20111012
  7. TIOPRONIN [Concomitant]
     Dosage: UNK
     Dates: start: 20111011
  8. PREDNISOLONE [Interacting]
     Dosage: UNK
     Dates: start: 20110816, end: 20110826
  9. CETIRIZINE [Concomitant]
     Dosage: UNK
     Dates: start: 20110705
  10. ESTRADIOL VALERATE [Concomitant]
     Dosage: UNK
     Dates: start: 20111011
  11. FLUOXETINE [Concomitant]
     Dosage: UNK
     Dates: start: 20110705
  12. AMLODIPINE [Concomitant]
     Dosage: UNK
     Dates: start: 20111012
  13. FLUTICASONE FUROATE [Concomitant]
  14. FUROSEMIDE [Concomitant]
     Dosage: UNK
     Dates: start: 20110705
  15. THEOPHYLLINE [Concomitant]
  16. VENTOLIN [Concomitant]
     Dosage: UNK
     Dates: start: 20111011
  17. LISINOPRIL [Interacting]
     Dosage: UNK
     Dates: start: 20101101
  18. OMEPRAZOLE [Concomitant]
     Dosage: UNK
     Dates: start: 20110705
  19. AMOXICILLIN [Suspect]
     Dosage: UNK
     Dates: start: 20110816, end: 20110821
  20. ACETAMINOPHEN AND CODEINE PHOSPHATE [Concomitant]
     Dosage: UNK
     Dates: start: 20110705
  21. BENDROFLUMETHIAZIDE [Concomitant]
     Dosage: UNK
     Dates: start: 20110705, end: 20110823

REACTIONS (5)
  - BRONCHOSPASM [None]
  - OROPHARYNGEAL PAIN [None]
  - DRY THROAT [None]
  - DRUG INTERACTION [None]
  - ANAPHYLACTIC REACTION [None]
